FAERS Safety Report 4661536-1 (Version None)
Quarter: 2005Q2

REPORT INFORMATION
  Report Type: 
  Country: None (occurrence: None)
  Receive Date: 20050511
  Receipt Date: 20050511
  Transmission Date: 20051028
  Serious: No
  Sender: FDA-Public Use
  Company Number: None

PATIENT
  Sex: Female
  Weight: 66.4 kg

DRUGS (6)
  1. ALLOPURINOL [Suspect]
     Dosage: 300 MG PO QD ON DAYS 1-14
     Route: 048
     Dates: start: 20050117
  2. CYCLOPHOSPHAMIDE [Suspect]
     Dosage: 200 MG/M2 IV OVER 15-30 MIN ON DAY 1
     Route: 042
  3. DAUNORUBICIN HCL [Suspect]
     Dosage: 80 MG/M2/DAY X 3 DAY IV ON DAYS 1, 2, .3
     Route: 042
  4. VINCRISTINE [Suspect]
     Dosage: 2 MG IVP ON DAYS 1, 8, 15, 22
     Route: 042
  5. ELSPAR [Suspect]
     Dosage: 6000 U/M2 SC /IM ON DAYS 5, 8, 15., 18, 22
     Route: 058
  6. G-CSF [Suspect]
     Dosage: 5 MCG/KG/DAY SC STARTING DAY 4 X 7 DAYS AND CONTINUING UNITL ANC IS } 5000 MCL PRN

REACTIONS (4)
  - GAIT DISTURBANCE [None]
  - MOTOR DYSFUNCTION [None]
  - PERONEAL NERVE PALSY [None]
  - SENSORY LOSS [None]
